FAERS Safety Report 8362811-X (Version None)
Quarter: 2012Q2

REPORT INFORMATION
  Report Type: 
  Country: None (occurrence: None)
  Receive Date: 20120516
  Receipt Date: 20120504
  Transmission Date: 20120825
  Serious: Yes (Life-Threatening, Hospitalization, Other)
  Sender: FDA-Public Use
  Company Number: DE-MPIJNJ-2012-03186

PATIENT

DRUGS (4)
  1. REVLIMID [Suspect]
     Indication: MULTIPLE MYELOMA
     Dosage: UNK
     Route: 048
     Dates: start: 20110301, end: 20110403
  2. VELCADE [Suspect]
     Indication: PLASMACYTOMA
     Dosage: UNK
     Route: 058
     Dates: start: 20110314, end: 20110403
  3. DEXAMETHASONE [Concomitant]
     Dosage: 20 MG, UNK
     Dates: start: 20110314, end: 20110402
  4. GABAPENTIN [Concomitant]
     Dosage: 100 MG, UNK

REACTIONS (2)
  - PNEUMONIA [None]
  - PULMONARY EMBOLISM [None]
